FAERS Safety Report 14389765 (Version 2)
Quarter: 2018Q1

REPORT INFORMATION
  Report Type: Spontaneous
  Country: FR (occurrence: FR)
  Receive Date: 20180115
  Receipt Date: 20180122
  Transmission Date: 20180509
  Serious: Yes (Other)
  Sender: FDA-Public Use
  Company Number: FR-IMPAX LABORATORIES, INC-2018-IPXL-00031

PATIENT
  Age: 18 Year
  Sex: Male

DRUGS (1)
  1. MINOCYCLINE HYDROCHLORIDE. [Suspect]
     Active Substance: MINOCYCLINE HYDROCHLORIDE
     Indication: ACNE
     Dosage: 50 MG, 2 /DAY
     Route: 065

REACTIONS (5)
  - Cerebral infarction [Unknown]
  - Lateral medullary syndrome [Unknown]
  - Antiphospholipid syndrome [Recovered/Resolved]
  - Cerebrovascular accident [Unknown]
  - Diplopia [Unknown]
